FAERS Safety Report 8183640-6 (Version None)
Quarter: 2012Q1

REPORT INFORMATION
  Report Type: 
  Country: None (occurrence: None)
  Receive Date: 20120305
  Receipt Date: 20120223
  Transmission Date: 20120608
  Serious: Yes (Other)
  Sender: FDA-Public Use
  Company Number: US-JNJFOC-20120212221

PATIENT
  Sex: Female
  Weight: 86.18 kg

DRUGS (6)
  1. TOPIRAMATE [Suspect]
     Indication: MIGRAINE
     Dosage: 1 AT AM AND 1 AT PM
     Route: 048
     Dates: start: 20111205
  2. TOPIRAMATE [Suspect]
     Dosage: 1 AT AM AND 1 AT PM
     Route: 048
     Dates: start: 20111205
  3. TOPIRAMATE [Suspect]
     Indication: CEREBROVASCULAR ACCIDENT
     Route: 048
  4. ESTROGEN [Suspect]
     Indication: PRODUCT USED FOR UNKNOWN INDICATION
     Route: 065
  5. TOPIRAMATE [Suspect]
     Route: 048
  6. ASPIRIN [Concomitant]
     Indication: THROMBOSIS PROPHYLAXIS
     Route: 048
     Dates: start: 20111201

REACTIONS (5)
  - HYPERHIDROSIS [None]
  - PARAESTHESIA [None]
  - DYSGEUSIA [None]
  - MENTAL DISORDER [None]
  - ABNORMAL LOSS OF WEIGHT [None]
